FAERS Safety Report 6600439-X (Version None)
Quarter: 2010Q1

REPORT INFORMATION
  Report Type: 
  Country: None (occurrence: None)
  Receive Date: 20100223
  Receipt Date: 20100223
  Transmission Date: 20100710
  Serious: Yes (Other)
  Sender: FDA-Public Use
  Company Number: None

PATIENT
  Age: 59 Year
  Sex: Female

DRUGS (3)
  1. VENTAVIS [Suspect]
     Indication: PULMONARY HYPERTENSION
     Dosage: UNK, 6 X DAY, RESPIRATORY
     Route: 055
  2. TRACLEER [Concomitant]
  3. COUMADIN [Concomitant]

REACTIONS (4)
  - CHILLS [None]
  - NAUSEA [None]
  - TREMOR [None]
  - VERTIGO [None]
